FAERS Safety Report 19640899 (Version 1)
Quarter: 2021Q3

REPORT INFORMATION
  Report Type: Spontaneous
  Country: US (occurrence: US)
  Receive Date: 20210730
  Receipt Date: 20210730
  Transmission Date: 20211014
  Serious: No
  Sender: FDA-Public Use
  Company Number: US-ABBVIE-21K-163-3809223-00

PATIENT
  Sex: Male

DRUGS (4)
  1. NIACIN ER [Suspect]
     Active Substance: NIACIN
     Indication: BLOOD CHOLESTEROL INCREASED
     Dosage: GENERIC FORM OF NIACIN ER
     Route: 048
  2. NIACIN ER [Suspect]
     Active Substance: NIACIN
     Dosage: GENERIC FORM OF NIACIN ER
     Route: 048
  3. NIASPAN [Suspect]
     Active Substance: NIACIN
     Indication: BLOOD CHOLESTEROL INCREASED
     Route: 048
  4. NIASPAN [Suspect]
     Active Substance: NIACIN
     Route: 048

REACTIONS (1)
  - Blood cholesterol increased [Unknown]
